FAERS Safety Report 8838388 (Version 1)
Quarter: 2012Q4

REPORT INFORMATION
  Report Type: 
  Country: NL (occurrence: NL)
  Receive Date: 20121012
  Receipt Date: 20121012
  Transmission Date: 20130627
  Serious: Yes (Hospitalization)
  Sender: FDA-Public Use
  Company Number: NL-PFIZER INC-2012248807

PATIENT
  Age: 65 Year
  Sex: Female
  Weight: 86 kg

DRUGS (17)
  1. GENOTROPIN [Suspect]
     Indication: GROWTH HORMONE DEFICIENCY
     Dosage: 0.3 mg, 1x/day, 7 injections/week
     Route: 058
     Dates: start: 20030616
  2. OESTROGEN ^HOLZINGER^ [Concomitant]
     Indication: BLOOD LUTEINISING HORMONE DECREASED
     Dosage: UNK
     Dates: start: 19810615
  3. OESTROGEN ^HOLZINGER^ [Concomitant]
     Indication: BLOOD FOLLICLE STIMULATING HORMONE DECREASED
  4. OESTROGEN ^HOLZINGER^ [Concomitant]
     Indication: HYPOGONADISM FEMALE
  5. PROGESTERONE [Concomitant]
     Indication: BLOOD LUTEINISING HORMONE DECREASED
     Dosage: UNK
     Dates: start: 19810615
  6. PROGESTERONE [Concomitant]
     Indication: BLOOD FOLLICLE STIMULATING HORMONE DECREASED
  7. PROGESTERONE [Concomitant]
     Indication: HYPOGONADISM FEMALE
  8. METOPROLOL [Concomitant]
     Indication: ESSENTIAL HYPERTENSION
     Dosage: UNK
     Dates: start: 19940615
  9. DILTIAZEM [Concomitant]
     Indication: ESSENTIAL HYPERTENSION
     Dosage: UNK
     Dates: start: 19950615
  10. LOSARTAN [Concomitant]
     Indication: ESSENTIAL HYPERTENSION
     Dosage: UNK
     Dates: start: 19970615
  11. LEVOTHYROXINE [Concomitant]
     Indication: BLOOD THYROID STIMULATING HORMONE DECREASED
     Dosage: UNK
     Dates: start: 19841115
  12. LIPITOR [Concomitant]
     Indication: HYPERTENSION
     Dosage: UNK
     Dates: start: 20021007
  13. CORTISONE ACETATE [Concomitant]
     Indication: BLOOD CORTICOTROPHIN DECREASED
     Dosage: UNK
     Dates: start: 19841115
  14. SYNAPAUSE E3 [Concomitant]
     Indication: BLOOD LUTEINISING HORMONE DECREASED
     Dosage: UNK
     Dates: start: 20040326
  15. SYNAPAUSE E3 [Concomitant]
     Indication: BLOOD FOLLICLE STIMULATING HORMONE DECREASED
  16. SYNAPAUSE E3 [Concomitant]
     Indication: HYPOGONADISM FEMALE
  17. LERDIP [Concomitant]
     Indication: HYPERTENSION
     Dosage: UNK
     Dates: start: 20040408

REACTIONS (1)
  - Stupor [Unknown]
